FAERS Safety Report 6369882-0 (Version None)
Quarter: 2009Q3

REPORT INFORMATION
  Report Type: 
  Country: None (occurrence: None)
  Receive Date: 20090923
  Receipt Date: 20070731
  Transmission Date: 20100115
  Serious: Yes (Other)
  Sender: FDA-Public Use
  Company Number: US-ASTRAZENECA-2006UW11208

PATIENT
  Sex: Male
  Weight: 112 kg

DRUGS (4)
  1. SEROQUEL [Suspect]
     Indication: DEPRESSION
     Dosage: 100-200 MG (FLUCTUATING) AT NIGHT
     Route: 048
     Dates: start: 20050913, end: 20051104
  2. SEROQUEL [Suspect]
     Route: 048
     Dates: end: 20051101
  3. ZYPREXA [Suspect]
  4. GEODON [Concomitant]

REACTIONS (2)
  - DIABETES MELLITUS [None]
  - PANCREATITIS [None]
